FAERS Safety Report 17119719 (Version 1)
Quarter: 2019Q4

REPORT INFORMATION
  Report Type: Report from Study
  Country: US (occurrence: US)
  Receive Date: 20191206
  Receipt Date: 20191206
  Transmission Date: 20200122
  Serious: Yes (Other)
  Sender: FDA-Public Use
  Company Number: US-ROCHE-2469588

PATIENT
  Sex: Female
  Weight: 114 kg

DRUGS (1)
  1. OCREVUS [Suspect]
     Active Substance: OCRELIZUMAB
     Indication: MULTIPLE SCLEROSIS
     Route: 042
     Dates: start: 20171027

REACTIONS (3)
  - Hypoaesthesia [Recovering/Resolving]
  - Fatigue [Unknown]
  - Multiple sclerosis relapse [Recovered/Resolved]
